FAERS Safety Report 21558038 (Version 1)
Quarter: 2022Q4

REPORT INFORMATION
  Report Type: Report from Study
  Country: CA (occurrence: CA)
  Receive Date: 20221107
  Receipt Date: 20221107
  Transmission Date: 20230112
  Serious: Yes (Hospitalization)
  Sender: FDA-Public Use
  Company Number: CA-002147023-NVSC2022CA241801

PATIENT
  Sex: Female

DRUGS (1)
  1. MAYZENT [Suspect]
     Active Substance: SIPONIMOD
     Indication: Secondary progressive multiple sclerosis
     Dosage: UNK
     Route: 048
     Dates: start: 20210118

REACTIONS (4)
  - COVID-19 [Unknown]
  - Asthenia [Unknown]
  - Gait disturbance [Unknown]
  - Malaise [Unknown]
